FAERS Safety Report 19739318 (Version 2)
Quarter: 2021Q3

REPORT INFORMATION
  Report Type: Report from Study
  Country: AU (occurrence: AU)
  Receive Date: 20210824
  Receipt Date: 20210924
  Transmission Date: 20211014
  Serious: Yes (Hospitalization, Other)
  Sender: FDA-Public Use
  Company Number: AU-BAYER-2021-197877

PATIENT
  Age: 39 Year
  Sex: Female

DRUGS (4)
  1. MEROPENEM. [Suspect]
     Active Substance: MEROPENEM
     Indication: CHOLANGITIS
     Dosage: UNK
     Dates: start: 20190425, end: 20190502
  2. CIPROFLOXACIN. [Suspect]
     Active Substance: CIPROFLOXACIN
     Indication: CHOLANGITIS
     Dosage: UNK
     Dates: start: 201904, end: 20190502
  3. VANCOMYCIN [Suspect]
     Active Substance: VANCOMYCIN
     Indication: CHOLANGITIS
     Dosage: UNK
     Dates: start: 20190418, end: 20190502
  4. TAZOCIN [Suspect]
     Active Substance: PIPERACILLIN SODIUM\TAZOBACTAM SODIUM
     Indication: CHOLANGITIS
     Dosage: UNK
     Dates: start: 20190418, end: 20190502

REACTIONS (1)
  - Drug reaction with eosinophilia and systemic symptoms [Recovered/Resolved]

NARRATIVE: CASE EVENT DATE: 20190502
